FAERS Safety Report 4557283-7 (Version None)
Quarter: 2005Q1

REPORT INFORMATION
  Report Type: 
  Country: None (occurrence: None)
  Receive Date: 20050118
  Receipt Date: 20050105
  Transmission Date: 20050727
  Serious: Yes (Disabling)
  Sender: FDA-Public Use
  Company Number: 2005006649

PATIENT
  Age: 74 Year
  Sex: Female
  Weight: 50 kg

DRUGS (3)
  1. DOXORUBICIN (DOXORUBICIN HYDROCHLORIDE) [Suspect]
     Indication: BREAST NEOPLASM
     Dosage: (40 MG) INTRAVENOUS
     Route: 042
     Dates: start: 20020312, end: 20020312
  2. GRANISETRON (GRANISETRON) [Concomitant]
  3. HYDROCORTISONE [Concomitant]

REACTIONS (5)
  - ASTHENIA [None]
  - CHEST DISCOMFORT [None]
  - FATIGUE [None]
  - FLUSHING [None]
  - TACHYCARDIA [None]
